FAERS Safety Report 9408215 (Version 1)
Quarter: 2013Q3

REPORT INFORMATION
  Report Type: Spontaneous
  Country: US (occurrence: US)
  Receive Date: 20130718
  Receipt Date: 20130718
  Transmission Date: 20140515
  Serious: Yes (Other)
  Sender: FDA-Public Use
  Company Number: US-VERTEX PHARMACEUTICALS INC-2013-008079

PATIENT
  Age: 35 Year
  Sex: Female

DRUGS (3)
  1. INCIVEK [Suspect]
     Indication: HEPATITIS C
     Dosage: 750 MG, TID
     Route: 048
     Dates: end: 20130709
  2. PEGASYS [Suspect]
     Indication: HEPATITIS C
     Dosage: 180 ?G/KG, QW
     Route: 058
     Dates: end: 20130709
  3. RIBAVIRIN [Suspect]
     Indication: HEPATITIS C
     Dosage: 600 MG, BID
     Route: 048
     Dates: end: 20130709

REACTIONS (1)
  - Stevens-Johnson syndrome [Recovered/Resolved]
